FAERS Safety Report 5654901-7 (Version None)
Quarter: 2008Q1

REPORT INFORMATION
  Report Type: 
  Country: None (occurrence: None)
  Receive Date: 20080307
  Receipt Date: 20070830
  Transmission Date: 20080703
  Serious: No
  Sender: FDA-Public Use
  Company Number: A0677749A

PATIENT
  Age: 56 Year
  Sex: Female

DRUGS (6)
  1. REQUIP [Suspect]
     Indication: RESTLESS LEGS SYNDROME
     Route: 048
     Dates: start: 20061101, end: 20060101
  2. SYNTHROID [Concomitant]
  3. PREVACID [Concomitant]
  4. DIPHENOXYLATE HYDROCHLORIDE + ATROPINE SULFATE [Concomitant]
  5. POTASSIUM CHLORIDE [Concomitant]
  6. TRAMADOL HCL [Concomitant]

REACTIONS (2)
  - ABDOMINAL DISCOMFORT [None]
  - GASTROOESOPHAGEAL REFLUX DISEASE [None]
